FAERS Safety Report 25265050 (Version 2)
Quarter: 2025Q2

REPORT INFORMATION
  Report Type: Spontaneous
  Country: SE (occurrence: SE)
  Receive Date: 20250502
  Receipt Date: 20250513
  Transmission Date: 20250717
  Serious: No
  Sender: AMGEN
  Company Number: SE-002147023-NVSC2025SE070481

PATIENT

DRUGS (1)
  1. AIMOVIG [Suspect]
     Active Substance: ERENUMAB-AOOE
     Indication: Product used for unknown indication
     Route: 050

REACTIONS (5)
  - Incorrect dose administered by device [Unknown]
  - Headache [Unknown]
  - Syringe issue [Unknown]
  - Needle issue [Unknown]
  - Device malfunction [Unknown]
